FAERS Safety Report 6339514-6 (Version None)
Quarter: 2009Q3

REPORT INFORMATION
  Report Type: 
  Country: None (occurrence: None)
  Receive Date: 20090827
  Receipt Date: 20090701
  Transmission Date: 20100115
  Serious: No
  Sender: FDA-Public Use
  Company Number: 001210

PATIENT
  Sex: Female

DRUGS (3)
  1. LACOSAMIDE [Suspect]
     Indication: CONVULSION
     Dosage: (BID)
     Dates: start: 20090528
  2. TRILEPTAL [Concomitant]
  3. CLONAZEPAM [Concomitant]

REACTIONS (5)
  - DRUG INEFFECTIVE [None]
  - EYE DISORDER [None]
  - LOGORRHOEA [None]
  - MEMORY IMPAIRMENT [None]
  - WEIGHT INCREASED [None]
